FAERS Safety Report 10948704 (Version 1)
Quarter: 2015Q1

REPORT INFORMATION
  Report Type: Spontaneous
  Country: US (occurrence: None)
  Receive Date: 20150323
  Receipt Date: 20150323
  Transmission Date: 20150721
  Serious: Yes (Other)
  Sender: FDA-Public Use
  Company Number: None

PATIENT
  Age: 56 Year
  Sex: Female
  Weight: 83.92 kg

DRUGS (3)
  1. BAYER 81 ASPIRIN [Concomitant]
  2. MICARDIS HCT [Suspect]
     Active Substance: HYDROCHLOROTHIAZIDE\TELMISARTAN
     Indication: HYPERTENSION
     Dosage: 1/2 PILL
     Route: 048
     Dates: start: 2014, end: 201409
  3. COENZYME Q10 [Concomitant]
     Active Substance: UBIDECARENONE

REACTIONS (9)
  - Skin exfoliation [None]
  - Skin swelling [None]
  - Chest discomfort [None]
  - Pruritus [None]
  - Throat irritation [None]
  - Eye swelling [None]
  - Erythema [None]
  - Skin burning sensation [None]
  - Ocular hyperaemia [None]

NARRATIVE: CASE EVENT DATE: 2014
